FAERS Safety Report 8155873-6 (Version None)
Quarter: 2012Q1

REPORT INFORMATION
  Report Type: 
  Country: None (occurrence: None)
  Receive Date: 20120221
  Receipt Date: 20120221
  Transmission Date: 20120608
  Serious: Yes (Life-Threatening, Hospitalization, Other)
  Sender: FDA-Public Use
  Company Number: None

PATIENT
  Sex: Female
  Weight: 79.3795 kg

DRUGS (2)
  1. DEXTROMETHORPHAN HYDROBROMIDE [Suspect]
     Indication: HALLUCINATION
     Dosage: 30ML (2 TBSP) 6-8 HRS. MOUTH
     Route: 048
     Dates: start: 20110801, end: 20111101
  2. CORICIDIN HBP SCHERING PLOUGH HEALTHCARE PRODUCTS [Suspect]
     Indication: SEDATION
     Dosage: 1 TABLET EVERY 6 HRS. MOUTH
     Route: 048

REACTIONS (2)
  - HALLUCINATION [None]
  - SEDATION [None]
